FAERS Safety Report 13759667 (Version 2)
Quarter: 2017Q4

REPORT INFORMATION
  Report Type: Spontaneous
  Country: US (occurrence: US)
  Receive Date: 20170717
  Receipt Date: 20171016
  Transmission Date: 20180320
  Serious: No
  Sender: FDA-Public Use
  Company Number: US-PFIZER INC-2017004023

PATIENT
  Age: 46 Year
  Sex: Female
  Weight: 84 kg

DRUGS (7)
  1. TRAZODONE [Concomitant]
     Active Substance: TRAZODONE HYDROCHLORIDE
     Dosage: UNK, REGULARLY
     Dates: start: 2011
  2. DOCETAXEL. [Suspect]
     Active Substance: DOCETAXEL
     Indication: CHEMOTHERAPY
     Dosage: 100 TO 158 MG, EVERY 3 WEEKS, EIGHT CYCLES
     Dates: start: 20110502, end: 20111210
  3. NEOSAR [Concomitant]
     Active Substance: CYCLOPHOSPHAMIDE
     Indication: CHEMOTHERAPY
     Dosage: UNK
  4. CYTOXAN [Concomitant]
     Active Substance: CYCLOPHOSPHAMIDE
     Indication: CHEMOTHERAPY
     Dosage: UNK
  5. NORCO [Concomitant]
     Active Substance: ACETAMINOPHEN\HYDROCODONE BITARTRATE
     Dosage: UNK, REGULARLY
     Dates: start: 2011
  6. DOCETAXEL. [Suspect]
     Active Substance: DOCETAXEL
     Indication: BREAST CANCER FEMALE
  7. LORAZEPAM. [Concomitant]
     Active Substance: LORAZEPAM
     Dosage: UNK, REGULARLY
     Dates: start: 2011

REACTIONS (5)
  - Hair disorder [Unknown]
  - Madarosis [Unknown]
  - Hair colour changes [Unknown]
  - Hair texture abnormal [Unknown]
  - Alopecia [Unknown]

NARRATIVE: CASE EVENT DATE: 201206
